FAERS Safety Report 18042162 (Version 1)
Quarter: 2020Q3

REPORT INFORMATION
  Report Type: Spontaneous
  Country: PL (occurrence: PL)
  Receive Date: 20200720
  Receipt Date: 20200720
  Transmission Date: 20201103
  Serious: Yes (Other)
  Sender: FDA-Public Use
  Company Number: PL-PFIZER INC-2020270776

PATIENT
  Sex: Female
  Weight: 88 kg

DRUGS (1)
  1. SUTENT [Suspect]
     Active Substance: SUNITINIB MALATE
     Indication: RENAL CELL CARCINOMA
     Dosage: 50 MG
     Route: 048

REACTIONS (16)
  - Leukopenia [Unknown]
  - Blood pressure increased [Unknown]
  - Skin lesion [Unknown]
  - Fungal infection [Unknown]
  - Diarrhoea [Unknown]
  - Hypothyroidism [Unknown]
  - Oedema [Unknown]
  - Cough [Unknown]
  - Pruritus [Unknown]
  - Insomnia [Unknown]
  - Neutropenia [Unknown]
  - Hyperglycaemia [Unknown]
  - Chronic kidney disease [Unknown]
  - Inflammation [Unknown]
  - Proctalgia [Unknown]
  - Dyspepsia [Unknown]
